FAERS Safety Report 9519505 (Version 3)
Quarter: 2013Q4

REPORT INFORMATION
  Report Type: Spontaneous
  Country: US (occurrence: US)
  Receive Date: 20130912
  Receipt Date: 20131216
  Transmission Date: 20140711
  Serious: No
  Sender: FDA-Public Use
  Company Number: US-VERTEX PHARMACEUTICALS INC-2013-009419

PATIENT
  Age: 65 Year
  Sex: Male
  Weight: 74.83 kg

DRUGS (11)
  1. INCIVEK [Suspect]
     Indication: HEPATITIS C
     Dosage: 750 MG, TID
     Route: 048
     Dates: start: 20130825, end: 20131209
  2. RIBAVIRIN [Suspect]
     Indication: HEPATITIS C
     Dosage: 600 MG IN AM, 400 MG IN PM
     Route: 048
     Dates: start: 20130825, end: 20131209
  3. PEGASYS [Suspect]
     Indication: HEPATITIS C
     Dosage: 180 ?G, QW
     Route: 058
     Dates: start: 20130825, end: 20131209
  4. TRAZODONE [Concomitant]
     Indication: INSOMNIA
     Dosage: 150 MG, QD, PRN
     Route: 048
  5. XANAX [Concomitant]
     Indication: ANXIETY
     Dosage: 0.5 MG, TID, PRN
     Route: 048
  6. XANAX [Concomitant]
     Indication: INSOMNIA
  7. AMBIEN [Concomitant]
     Indication: INSOMNIA
     Dosage: 10 MG, QD, PRN
     Route: 048
  8. UNISOM [Concomitant]
     Indication: INSOMNIA
     Dosage: QHS
     Route: 048
  9. BAYER ASPIRIN [Concomitant]
     Indication: PROPHYLAXIS
     Dosage: UNK, QD
     Route: 048
  10. ST MARY^S THISTLE [Concomitant]
     Indication: LIVER DISORDER
     Dosage: UNK, QD
     Route: 048
  11. CENTRUM SILVER [Concomitant]
     Indication: SUPPLEMENTATION THERAPY
     Dosage: UNK, QD
     Route: 048

REACTIONS (6)
  - Incorrect drug administration duration [Recovered/Resolved]
  - Drug dose omission [Unknown]
  - Laceration [Not Recovered/Not Resolved]
  - Pruritus [Not Recovered/Not Resolved]
  - Haematochezia [Not Recovered/Not Resolved]
  - Rash erythematous [Not Recovered/Not Resolved]
